FAERS Safety Report 14578972 (Version 2)
Quarter: 2018Q1

REPORT INFORMATION
  Report Type: Spontaneous
  Country: IT (occurrence: IT)
  Receive Date: 20180227
  Receipt Date: 20180305
  Transmission Date: 20180509
  Serious: Yes (Death)
  Sender: FDA-Public Use
  Company Number: IT-SA-2018SA045023

PATIENT
  Age: 69 Year
  Sex: Male

DRUGS (9)
  1. DEFLAN [Suspect]
     Active Substance: DEFLAZACORT
     Indication: RHEUMATOID ARTHRITIS
     Route: 048
     Dates: start: 20170508, end: 20170731
  2. LASIX [Concomitant]
     Active Substance: FUROSEMIDE
  3. KANRENOL [Concomitant]
     Active Substance: CANRENOATE POTASSIUM
  4. ATORVASTATIN [Concomitant]
     Active Substance: ATORVASTATIN
  5. AMIODARONE [Concomitant]
     Active Substance: AMIODARONE
  6. CARDIRENE [Concomitant]
     Active Substance: ASPIRIN DL-LYSINE
  7. LOSAPREX [Concomitant]
     Active Substance: LOSARTAN POTASSIUM
  8. DIBASE [Concomitant]
     Active Substance: CHOLECALCIFEROL
  9. ARAVA [Suspect]
     Active Substance: LEFLUNOMIDE
     Indication: RHEUMATOID ARTHRITIS
     Route: 048
     Dates: start: 20140923, end: 20170807

REACTIONS (1)
  - Adenocarcinoma of colon [Fatal]

NARRATIVE: CASE EVENT DATE: 20171218
